FAERS Safety Report 5876581-8 (Version None)
Quarter: 2008Q3

REPORT INFORMATION
  Report Type: 
  Country: None (occurrence: None)
  Receive Date: 20080910
  Receipt Date: 20080709
  Transmission Date: 20090109
  Serious: No
  Sender: FDA-Public Use
  Company Number: US-BAYER-200828536NA

PATIENT
  Age: 32 Year
  Sex: Female
  Weight: 73 kg

DRUGS (3)
  1. MIRENA [Suspect]
     Route: 015
     Dates: start: 20070501
  2. SINGULAIR [Concomitant]
  3. SYNTHROID [Concomitant]

REACTIONS (1)
  - MENSTRUATION DELAYED [None]
